FAERS Safety Report 9849308 (Version 1)
Quarter: 2014Q1

REPORT INFORMATION
  Report Type: Spontaneous
  Country: IR (occurrence: IR)
  Receive Date: 20140128
  Receipt Date: 20140128
  Transmission Date: 20141002
  Serious: Yes (Hospitalization, Other)
  Sender: FDA-Public Use
  Company Number: IR-MYLANLABS-2014S1001263

PATIENT
  Age: 32 Year
  Sex: Male

DRUGS (30)
  1. ZOLPIDEM [Suspect]
     Indication: ANXIETY
     Dosage: 10MG; INCREASED TO 100 TABLETS WITHIN 6M
     Route: 065
  2. ZOLPIDEM [Suspect]
     Indication: INSOMNIA
     Dosage: 10MG; INCREASED TO 100 TABLETS WITHIN 6M
     Route: 065
  3. ZOLPIDEM [Suspect]
     Indication: DRUG ABUSE
     Dosage: 10MG; INCREASED TO 100 TABLETS WITHIN 6M
     Route: 065
  4. ZOLPIDEM [Suspect]
     Indication: TIC
     Dosage: 10MG; INCREASED TO 100 TABLETS WITHIN 6M
     Route: 065
  5. ZOLPIDEM [Suspect]
     Indication: ANXIETY
     Dosage: 100 TABLETS; INCREASED TO 110-140 TABLETS 6M LATER
     Route: 065
  6. ZOLPIDEM [Suspect]
     Indication: INSOMNIA
     Dosage: 100 TABLETS; INCREASED TO 110-140 TABLETS 6M LATER
     Route: 065
  7. ZOLPIDEM [Suspect]
     Indication: DRUG ABUSE
     Dosage: 100 TABLETS; INCREASED TO 110-140 TABLETS 6M LATER
     Route: 065
  8. ZOLPIDEM [Suspect]
     Indication: TIC
     Dosage: 100 TABLETS; INCREASED TO 110-140 TABLETS 6M LATER
     Route: 065
  9. ZOLPIDEM [Suspect]
     Indication: ANXIETY
     Dosage: 110-140 TABLETS (1100-1400MG); THEN 200 TABLETS
     Route: 065
  10. ZOLPIDEM [Suspect]
     Indication: INSOMNIA
     Dosage: 110-140 TABLETS (1100-1400MG); THEN 200 TABLETS
     Route: 065
  11. ZOLPIDEM [Suspect]
     Indication: DRUG ABUSE
     Dosage: 110-140 TABLETS (1100-1400MG); THEN 200 TABLETS
     Route: 065
  12. ZOLPIDEM [Suspect]
     Indication: TIC
     Dosage: 110-140 TABLETS (1100-1400MG); THEN 200 TABLETS
     Route: 065
  13. ZOLPIDEM [Suspect]
     Indication: ANXIETY
     Dosage: 200 TABLETS OF 10MG; THEN RESTARTED AT 10 MG/DAY 1M LATER
     Route: 065
  14. ZOLPIDEM [Suspect]
     Indication: INSOMNIA
     Dosage: 200 TABLETS OF 10MG; THEN RESTARTED AT 10 MG/DAY 1M LATER
     Route: 065
  15. ZOLPIDEM [Suspect]
     Indication: DRUG ABUSE
     Dosage: 200 TABLETS OF 10MG; THEN RESTARTED AT 10 MG/DAY 1M LATER
     Route: 065
  16. ZOLPIDEM [Suspect]
     Indication: TIC
     Dosage: 200 TABLETS OF 10MG; THEN RESTARTED AT 10 MG/DAY 1M LATER
     Route: 065
  17. ZOLPIDEM [Suspect]
     Indication: ANXIETY
     Dosage: 10 MG/DAY; INCREASED TO 1000 MG/DAY
     Route: 065
  18. ZOLPIDEM [Suspect]
     Indication: INSOMNIA
     Dosage: 10 MG/DAY; INCREASED TO 1000 MG/DAY
     Route: 065
  19. ZOLPIDEM [Suspect]
     Indication: DRUG ABUSE
     Dosage: 10 MG/DAY; INCREASED TO 1000 MG/DAY
     Route: 065
  20. ZOLPIDEM [Suspect]
     Indication: TIC
     Dosage: 10 MG/DAY; INCREASED TO 1000 MG/DAY
     Route: 065
  21. ZOLPIDEM [Suspect]
     Indication: ANXIETY
     Dosage: 1000 MG/DAY; DECREASED TO 400 MG/DAY WITHIN 6M
     Route: 065
  22. ZOLPIDEM [Suspect]
     Indication: INSOMNIA
     Dosage: 1000 MG/DAY; DECREASED TO 400 MG/DAY WITHIN 6M
     Route: 065
  23. ZOLPIDEM [Suspect]
     Indication: DRUG ABUSE
     Dosage: 1000 MG/DAY; DECREASED TO 400 MG/DAY WITHIN 6M
     Route: 065
  24. ZOLPIDEM [Suspect]
     Indication: TIC
     Dosage: 1000 MG/DAY; DECREASED TO 400 MG/DAY WITHIN 6M
     Route: 065
  25. ZOLPIDEM [Suspect]
     Indication: ANXIETY
     Dosage: 400 MG/DAY
     Route: 065
  26. ZOLPIDEM [Suspect]
     Indication: INSOMNIA
     Dosage: 400 MG/DAY
     Route: 065
  27. ZOLPIDEM [Suspect]
     Indication: DRUG ABUSE
     Dosage: 400 MG/DAY
     Route: 065
  28. ZOLPIDEM [Suspect]
     Indication: TIC
     Dosage: 400 MG/DAY
     Route: 065
  29. DIPHENOXYLATE [Suspect]
     Indication: DRUG ABUSE
     Dosage: 40 TABLETS; INCREASED TO 120 TABLETS WITHIN 6M
     Route: 065
  30. DIPHENOXYLATE [Suspect]
     Indication: DRUG ABUSE
     Dosage: 120 TABLETS
     Route: 065

REACTIONS (13)
  - Drug abuse [Recovered/Resolved]
  - Drug abuse [Recovered/Resolved]
  - Drug dependence [Unknown]
  - Withdrawal syndrome [Unknown]
  - Convulsion [Unknown]
  - Restlessness [Unknown]
  - Irritability [Unknown]
  - Myalgia [Unknown]
  - Palpitations [Unknown]
  - Tic [Unknown]
  - Rhinorrhoea [Unknown]
  - Diarrhoea [Unknown]
  - Euphoric mood [Unknown]
